FAERS Safety Report 21514412 (Version 2)
Quarter: 2022Q4

REPORT INFORMATION
  Report Type: Spontaneous
  Country: US (occurrence: US)
  Receive Date: 20221027
  Receipt Date: 20221109
  Transmission Date: 20230113
  Serious: Yes (Hospitalization)
  Sender: FDA-Public Use
  Company Number: US-TEVA-2022-US-2818686

PATIENT
  Age: 10 Day
  Sex: Male

DRUGS (1)
  1. ALPROSTADIL [Suspect]
     Active Substance: ALPROSTADIL
     Indication: Congenital cardiovascular anomaly
     Dosage: VIA PERIPHERAL IV LINE INFUSION
     Route: 041

REACTIONS (1)
  - Urticaria [Recovered/Resolved]
